FAERS Safety Report 9893755 (Version 6)
Quarter: 2020Q2

REPORT INFORMATION
  Report Type: Spontaneous
  Country: US (occurrence: US)
  Receive Date: 20140213
  Receipt Date: 20200608
  Transmission Date: 20200714
  Serious: Yes (Hospitalization, Other)
  Sender: FDA-Public Use
  Company Number: US-009507513-1402USA004141

PATIENT
  Sex: Female
  Weight: 52.61 kg

DRUGS (4)
  1. ALENDRONATE SODIUM. [Suspect]
     Active Substance: ALENDRONATE SODIUM
     Indication: OSTEOPENIA
     Dosage: 70 MG, UNK
     Route: 048
     Dates: start: 2001, end: 2011
  2. CHOLECALCIFEROL [Concomitant]
     Active Substance: CHOLECALCIFEROL
     Indication: OSTEOPENIA
     Dosage: 800- 1600 IU, DAILY
     Route: 048
     Dates: start: 2000
  3. CALCIUM (UNSPECIFIED) [Concomitant]
     Active Substance: CALCIUM
     Indication: OSTEOPENIA
     Dosage: 1200-1500 IU, DAILY
     Route: 048
     Dates: start: 2000
  4. FOSAMAX [Suspect]
     Active Substance: ALENDRONATE SODIUM
     Indication: OSTEOPENIA
     Dosage: 70 MG, UNK
     Route: 048
     Dates: start: 2001

REACTIONS (8)
  - Osteoporosis postmenopausal [Unknown]
  - Intramedullary rod insertion [Unknown]
  - Degenerative bone disease [Unknown]
  - Femur fracture [Recovering/Resolving]
  - Open reduction of fracture [Unknown]
  - Femur fracture [Unknown]
  - Scoliosis [Unknown]
  - Anxiety [Unknown]

NARRATIVE: CASE EVENT DATE: 200607
